FAERS Safety Report 7047597-3 (Version None)
Quarter: 2010Q4

REPORT INFORMATION
  Report Type: 
  Country: None (occurrence: None)
  Receive Date: 20101015
  Receipt Date: 20101006
  Transmission Date: 20110411
  Serious: Yes (Other)
  Sender: FDA-Public Use
  Company Number: US-JNJFOC-20101000842

PATIENT
  Sex: Male
  Weight: 53.2 kg

DRUGS (4)
  1. INFLIXIMAB, RECOMBINANT [Suspect]
     Indication: INFLAMMATORY BOWEL DISEASE
     Route: 042
  2. 5-ASA [Concomitant]
  3. 6-MERCAPTOPURINE [Concomitant]
  4. PREDNISONE [Concomitant]

REACTIONS (1)
  - LABORATORY TEST ABNORMAL [None]
